FAERS Safety Report 16806406 (Version 6)
Quarter: 2020Q1

REPORT INFORMATION
  Report Type: Report from Study
  Country: US (occurrence: US)
  Receive Date: 20190913
  Receipt Date: 20200123
  Transmission Date: 20200409
  Serious: Yes (Hospitalization)
  Sender: FDA-Public Use
  Company Number: US-ACTELION-A-NJ2019-187937

PATIENT
  Age: 54 Year
  Sex: Female
  Weight: 74.38 kg

DRUGS (6)
  1. NORTRIPTYLINE [Concomitant]
     Active Substance: NORTRIPTYLINE
     Dosage: 25 MG, QD
     Dates: start: 2009
  2. ORENITRAM [Concomitant]
     Active Substance: TREPROSTINIL
     Indication: PRODUCT USED FOR UNKNOWN INDICATION
     Dosage: 30 MG, QD
     Route: 048
     Dates: start: 2018
  3. OPSUMIT [Suspect]
     Active Substance: MACITENTAN
     Indication: PULMONARY ARTERIAL HYPERTENSION
     Dosage: 10 MG, QD
     Route: 048
     Dates: start: 201905, end: 20191213
  4. REMODULIN [Concomitant]
     Active Substance: TREPROSTINIL
     Route: 042
  5. SILDENAFIL CITRATE. [Concomitant]
     Active Substance: SILDENAFIL CITRATE
     Dosage: 20 MG, TID
     Dates: start: 2009
  6. LEVOTHYROXINE. [Concomitant]
     Active Substance: LEVOTHYROXINE
     Dosage: ONCE EVERY OTHER DAY
     Dates: start: 2015

REACTIONS (19)
  - Therapy change [Unknown]
  - Palpitations [Unknown]
  - Diarrhoea [Unknown]
  - Nausea [Unknown]
  - Dry mouth [Not Recovered/Not Resolved]
  - Product dose omission [Recovered/Resolved]
  - Dyspnoea exertional [Unknown]
  - Fatigue [Unknown]
  - Pericardial effusion [Unknown]
  - Oedema [Unknown]
  - Flushing [Recovered/Resolved]
  - Urinary tract infection [Unknown]
  - Chest pain [Unknown]
  - Dizziness [Unknown]
  - Tachycardia [Unknown]
  - Abdominal distension [Not Recovered/Not Resolved]
  - Dyspnoea [Unknown]
  - Blood potassium decreased [Unknown]
  - Stress [Unknown]

NARRATIVE: CASE EVENT DATE: 201906
